FAERS Safety Report 10053132 (Version 3)
Quarter: 2014Q2

REPORT INFORMATION
  Report Type: Report from Study
  Country: US (occurrence: US)
  Receive Date: 20140402
  Receipt Date: 20140602
  Transmission Date: 20141212
  Serious: Yes (Death, Hospitalization, Other)
  Sender: FDA-Public Use
  Company Number: US-ALEXION-A201400982

PATIENT
  Sex: 0

DRUGS (2)
  1. SOLIRIS [Suspect]
     Indication: HAEMOLYTIC URAEMIC SYNDROME
     Dosage: 1200 MG, Q2W
     Route: 042
     Dates: start: 20140205
  2. SOLIRIS [Suspect]
     Dosage: 1200 MG, QW
     Dates: start: 20140417, end: 20140424

REACTIONS (4)
  - Death [Fatal]
  - Dialysis [Unknown]
  - Unevaluable event [Unknown]
  - Inappropriate schedule of drug administration [Unknown]
